FAERS Safety Report 4835414-9 (Version None)
Quarter: 2005Q4

REPORT INFORMATION
  Report Type: 
  Country: None (occurrence: None)
  Receive Date: 20051118
  Receipt Date: 20051107
  Transmission Date: 20060501
  Serious: Yes (Death)
  Sender: FDA-Public Use
  Company Number: 2005-BP-19361RO

PATIENT
  Age: 26 Year
  Sex: Male

DRUGS (1)
  1. COCAINE                 (COCAINE) [Suspect]

REACTIONS (5)
  - BODY TEMPERATURE INCREASED [None]
  - HYPOTENSION [None]
  - STATUS EPILEPTICUS [None]
  - TACHYCARDIA [None]
  - THERAPY NON-RESPONDER [None]
